FAERS Safety Report 12109427 (Version 1)
Quarter: 2016Q1

REPORT INFORMATION
  Report Type: Spontaneous
  Country: US (occurrence: None)
  Receive Date: 20160222
  Receipt Date: 20160222
  Transmission Date: 20160526
  Serious: Yes (Hospitalization)
  Sender: FDA-Public Use
  Company Number: None

PATIENT
  Age: 45 Year
  Sex: Female

DRUGS (1)
  1. IFOSFAMIDE. [Suspect]
     Active Substance: IFOSFAMIDE
     Indication: NEOPLASM MALIGNANT
     Route: 042
     Dates: start: 20151001

REACTIONS (5)
  - Hypophosphataemia [None]
  - Hyponatraemia [None]
  - Hypokalaemia [None]
  - Hypomagnesaemia [None]
  - Glycosuria [None]

NARRATIVE: CASE EVENT DATE: 20151013
